FAERS Safety Report 18098518 (Version 2)
Quarter: 2020Q4

REPORT INFORMATION
  Report Type: Spontaneous
  Country: US (occurrence: US)
  Receive Date: 20200731
  Receipt Date: 20201029
  Transmission Date: 20210113
  Serious: Yes (Hospitalization, Other)
  Sender: FDA-Public Use
  Company Number: US-PFIZER INC-2020291198

PATIENT
  Age: 67 Year
  Sex: Female
  Weight: 72.57 kg

DRUGS (2)
  1. PHENYTOIN. [Suspect]
     Active Substance: PHENYTOIN
     Indication: SEIZURE
     Dosage: UNK
     Route: 065
  2. ELIQUIS [Interacting]
     Active Substance: APIXABAN
     Indication: PULMONARY EMBOLISM
     Dosage: 5 MILLIGRAM, BID
     Route: 048
     Dates: start: 2020

REACTIONS (4)
  - Pulmonary embolism [Recovering/Resolving]
  - Condition aggravated [Recovering/Resolving]
  - Labelled drug-drug interaction medication error [Unknown]
  - Seizure [Unknown]
